FAERS Safety Report 12994589 (Version 1)
Quarter: 2016Q4

REPORT INFORMATION
  Report Type: Report from Study
  Country: DE (occurrence: DE)
  Receive Date: 20161202
  Receipt Date: 20161202
  Transmission Date: 20170207
  Serious: Yes (Other)
  Sender: FDA-Public Use
  Company Number: PHHY2016DE132840

PATIENT
  Sex: Female

DRUGS (3)
  1. SUTENT [Concomitant]
     Active Substance: SUNITINIB MALATE
     Indication: GASTROINTESTINAL STROMAL TUMOUR
     Dosage: UNK
     Route: 065
  2. GLIVEC [Suspect]
     Active Substance: IMATINIB MESYLATE
     Indication: GASTROINTESTINAL STROMAL TUMOUR
     Dosage: 400 MG, UNK
     Route: 048
     Dates: start: 20131122, end: 20160222
  3. GLIVEC [Suspect]
     Active Substance: IMATINIB MESYLATE
     Dosage: } 400 MG, QD
     Route: 048
     Dates: start: 20160222, end: 20160606

REACTIONS (6)
  - Metastases to lung [Recovering/Resolving]
  - Malignant neoplasm progression [Unknown]
  - Hepatic mass [Unknown]
  - Metastases to liver [Recovering/Resolving]
  - Toxicity to various agents [Unknown]
  - Gastrointestinal stromal tumour [Unknown]

NARRATIVE: CASE EVENT DATE: 20160222
